FAERS Safety Report 26195699 (Version 1)
Quarter: 2025Q4

REPORT INFORMATION
  Report Type: Spontaneous
  Country: AU (occurrence: AU)
  Receive Date: 20251224
  Receipt Date: 20251224
  Transmission Date: 20260117
  Serious: Yes (Other)
  Sender: MYLAN
  Company Number: AU-MYLANLABS-2025M1110094

PATIENT
  Age: 85 Year
  Sex: Male

DRUGS (20)
  1. METHOTREXATE [Suspect]
     Active Substance: METHOTREXATE
     Indication: Chronic actinic dermatitis
     Dosage: UNK
  2. METHOTREXATE [Suspect]
     Active Substance: METHOTREXATE
     Dosage: UNK
     Route: 065
  3. METHOTREXATE [Suspect]
     Active Substance: METHOTREXATE
     Dosage: UNK
     Route: 065
  4. METHOTREXATE [Suspect]
     Active Substance: METHOTREXATE
     Dosage: UNK
  5. MYCOPHENOLATE MOFETIL [Suspect]
     Active Substance: MYCOPHENOLATE MOFETIL
     Indication: Chronic actinic dermatitis
     Dosage: UNK
  6. MYCOPHENOLATE MOFETIL [Suspect]
     Active Substance: MYCOPHENOLATE MOFETIL
     Dosage: UNK
     Route: 065
  7. MYCOPHENOLATE MOFETIL [Suspect]
     Active Substance: MYCOPHENOLATE MOFETIL
     Dosage: UNK
     Route: 065
  8. MYCOPHENOLATE MOFETIL [Suspect]
     Active Substance: MYCOPHENOLATE MOFETIL
     Dosage: UNK
  9. AZATHIOPRINE [Suspect]
     Active Substance: AZATHIOPRINE
     Indication: Chronic actinic dermatitis
     Dosage: UNK
  10. AZATHIOPRINE [Suspect]
     Active Substance: AZATHIOPRINE
     Dosage: UNK
     Route: 065
  11. AZATHIOPRINE [Suspect]
     Active Substance: AZATHIOPRINE
     Dosage: UNK
     Route: 065
  12. AZATHIOPRINE [Suspect]
     Active Substance: AZATHIOPRINE
     Dosage: UNK
  13. PREDNISOLONE [Suspect]
     Active Substance: PREDNISOLONE
     Indication: Chronic actinic dermatitis
     Dosage: UNK
  14. PREDNISOLONE [Suspect]
     Active Substance: PREDNISOLONE
     Dosage: UNK
     Route: 065
  15. PREDNISOLONE [Suspect]
     Active Substance: PREDNISOLONE
     Dosage: UNK
     Route: 065
  16. PREDNISOLONE [Suspect]
     Active Substance: PREDNISOLONE
     Dosage: UNK
  17. CYCLOSPORINE [Concomitant]
     Active Substance: CYCLOSPORINE
     Indication: Chronic actinic dermatitis
     Dosage: UNK
  18. CYCLOSPORINE [Concomitant]
     Active Substance: CYCLOSPORINE
     Dosage: UNK
     Route: 065
  19. CYCLOSPORINE [Concomitant]
     Active Substance: CYCLOSPORINE
     Dosage: UNK
     Route: 065
  20. CYCLOSPORINE [Concomitant]
     Active Substance: CYCLOSPORINE
     Dosage: UNK

REACTIONS (3)
  - Drug ineffective for unapproved indication [Unknown]
  - Drug intolerance [Unknown]
  - Product prescribing issue [Unknown]
